FAERS Safety Report 5597831-1 (Version None)
Quarter: 2007Q4

REPORT INFORMATION
  Report Type: 
  Country: None (occurrence: None)
  Receive Date: 20071221
  Receipt Date: 20070904
  Transmission Date: 20080405
  Serious: Yes (Other)
  Sender: FDA-Public Use
  Company Number: 2007068230

PATIENT
  Age: 51 Year
  Sex: Male
  Weight: 83.9 kg

DRUGS (5)
  1. NITROSTAT [Suspect]
     Indication: ANGINA PECTORIS
     Dosage: (0.4 MG),ORAL
     Route: 048
     Dates: start: 20070101
  2. PLAVIX [Concomitant]
  3. TOPROL-XL [Concomitant]
  4. NIACIN [Concomitant]
  5. LISINOPRIL [Concomitant]

REACTIONS (1)
  - DRUG INEFFECTIVE [None]
